FAERS Safety Report 11329793 (Version 1)
Quarter: 2015Q3

REPORT INFORMATION
  Report Type: Spontaneous
  Country: US (occurrence: None)
  Receive Date: 20150730
  Receipt Date: 20150730
  Transmission Date: 20151125
  Serious: Yes (Hospitalization, Other)
  Sender: FDA-Public Use
  Company Number: US-ZYDUS-008676

PATIENT
  Age: 24 Year
  Sex: Female

DRUGS (1)
  1. LEVETIRACETAM (LEVETIRACETAM) [Suspect]
     Active Substance: LEVETIRACETAM
     Indication: SEIZURE

REACTIONS (7)
  - Seizure [None]
  - Diabetes insipidus [None]
  - Electrocardiogram QT prolonged [None]
  - Ventricular tachycardia [None]
  - Pneumonia [None]
  - Torsade de pointes [None]
  - Dyspnoea [None]
